FAERS Safety Report 10484963 (Version 2)
Quarter: 2014Q4

REPORT INFORMATION
  Report Type: Report from Study
  Country: MX (occurrence: MX)
  Receive Date: 20140930
  Receipt Date: 20141029
  Transmission Date: 20150528
  Serious: Yes (Death, Hospitalization)
  Sender: FDA-Public Use
  Company Number: PHHY2014MX128008

PATIENT
  Age: 47 Year
  Sex: Female

DRUGS (3)
  1. TEGRETOL [Suspect]
     Active Substance: CARBAMAZEPINE
     Indication: PETIT MAL EPILEPSY
     Dosage: 1 DF, QD
  2. LEVOTHYROXINE [Concomitant]
     Active Substance: LEVOTHYROXINE
     Indication: HYPOTHYROIDISM
     Dosage: UNK UKN, UNK
     Route: 065
     Dates: start: 201403
  3. TEGRETOL [Suspect]
     Active Substance: CARBAMAZEPINE
     Indication: EPILEPSY
     Dosage: 2 DF, QD 1 TABLET IN THE MORNING, 0.5 TABLET IN THE AFTERNOON AND 0.5 TABLET AT NIGHT)
     Route: 048

REACTIONS (3)
  - Neoplasm recurrence [Unknown]
  - Breast cancer [Fatal]
  - Neoplasm [Unknown]
